FAERS Safety Report 16154453 (Version 1)
Quarter: 2019Q2

REPORT INFORMATION
  Report Type: Spontaneous
  Country: US (occurrence: US)
  Receive Date: 20190403
  Receipt Date: 20190403
  Transmission Date: 20190711
  Serious: No
  Sender: FDA-Public Use
  Company Number: US-AMGEN-USASP2019050462

PATIENT

DRUGS (1)
  1. NEUPOGEN [Suspect]
     Active Substance: FILGRASTIM
     Indication: PRODUCT USED FOR UNKNOWN INDICATION
     Dosage: 5 MICROGRAM/KILOGRAM
     Route: 058

REACTIONS (23)
  - Throat irritation [Unknown]
  - Chills [Unknown]
  - Headache [Unknown]
  - Flatulence [Unknown]
  - Injection site erythema [Unknown]
  - Dizziness [Unknown]
  - Dyspnoea [Unknown]
  - Abdominal pain [Unknown]
  - Non-cardiac chest pain [Unknown]
  - Oropharyngeal pain [Unknown]
  - Arthralgia [Unknown]
  - Palpitations [Unknown]
  - Pain [Unknown]
  - Pain in extremity [Unknown]
  - Fatigue [Unknown]
  - Nausea [Unknown]
  - Chest pain [Unknown]
  - Musculoskeletal pain [Unknown]
  - Dermatitis [Unknown]
  - Pyrexia [Unknown]
  - Back pain [Unknown]
  - Dry mouth [Unknown]
  - Cough [Unknown]
